FAERS Safety Report 18997486 (Version 5)
Quarter: 2021Q3

REPORT INFORMATION
  Report Type: Report from Study
  Country: US (occurrence: US)
  Receive Date: 20210311
  Receipt Date: 20210722
  Transmission Date: 20211014
  Serious: No
  Sender: FDA-Public Use
  Company Number: NVSC2021US055751

PATIENT
  Sex: Male

DRUGS (1)
  1. ENTRESTO [Suspect]
     Active Substance: SACUBITRIL\VALSARTAN
     Indication: CARDIAC FAILURE
     Dosage: UNK UNK, UNKNOWN
     Route: 065

REACTIONS (7)
  - Raynaud^s phenomenon [Unknown]
  - Angiopathy [Unknown]
  - Muscle spasms [Unknown]
  - Gait disturbance [Unknown]
  - Somnolence [Unknown]
  - Cough [Unknown]
  - Peripheral swelling [Unknown]
